FAERS Safety Report 10071277 (Version 2)
Quarter: 2014Q2

REPORT INFORMATION
  Report Type: Spontaneous
  Country: JP (occurrence: JP)
  Receive Date: 20140410
  Receipt Date: 20140410
  Transmission Date: 20141212
  Serious: Yes (Hospitalization)
  Sender: FDA-Public Use
  Company Number: JP-ELI_LILLY_AND_COMPANY-JP201401002390

PATIENT
  Age: 43 Year
  Sex: Male

DRUGS (2)
  1. ZYPREXA [Suspect]
     Indication: SCHIZOPHRENIA
     Dosage: 5 MG, QD
     Route: 048
  2. SELENICA-R [Concomitant]
     Dosage: UNK

REACTIONS (3)
  - Schizophrenia [Unknown]
  - Aggression [Unknown]
  - Eyelid ptosis [Unknown]
